FAERS Safety Report 5670175-5 (Version None)
Quarter: 2008Q1

REPORT INFORMATION
  Report Type: 
  Country: None (occurrence: None)
  Receive Date: 20080312
  Receipt Date: 20080227
  Transmission Date: 20080703
  Serious: Yes (Life-Threatening, Hospitalization)
  Sender: FDA-Public Use
  Company Number: NUBN20080001

PATIENT
  Age: 32 Year
  Sex: Female

DRUGS (7)
  1. NUBAIN [Suspect]
     Indication: PAIN
     Dosage: 20 MG, X 4 DAILY, INTRAVENOUS
     Route: 042
     Dates: start: 20070930, end: 20071001
  2. TERCIAN [Suspect]
     Indication: ABDOMINAL PAIN
     Dosage: 300 MG, DAILY, PER ORAL
     Route: 048
     Dates: start: 20070930
  3. DEROXAT [Suspect]
     Dosage: PER ORAL
     Route: 048
     Dates: start: 20070930, end: 20071001
  4. EFFEXOR [Suspect]
     Indication: ANXIETY
     Dosage: PER ORAL
     Route: 048
     Dates: start: 20070930, end: 20071001
  5. PERFALGAN [Suspect]
     Indication: PAIN
     Dosage: 4 GM, ONCE DAILY, INTRAVENOUS
     Route: 042
     Dates: start: 20070930
  6. ACUPAN [Suspect]
     Dosage: 6, DOSAGE FORM DAILY,
     Dates: start: 20070930
  7. AUGMENTIN '125' [Suspect]
     Indication: PROPHYLAXIS
     Dosage: 3 GM, DAILY, INTRAVENOUS
     Route: 042
     Dates: start: 20070930, end: 20071001

REACTIONS (8)
  - ACCIDENTAL OVERDOSE [None]
  - AGITATION [None]
  - CONDITION AGGRAVATED [None]
  - CONFUSIONAL STATE [None]
  - POST PROCEDURAL COMPLICATION [None]
  - RESPIRATORY DISTRESS [None]
  - RESPIRATORY FAILURE [None]
  - SOMNOLENCE [None]
